FAERS Safety Report 8171953-3 (Version None)
Quarter: 2012Q1

REPORT INFORMATION
  Report Type: 
  Country: None (occurrence: None)
  Receive Date: 20120228
  Receipt Date: 20120224
  Transmission Date: 20120608
  Serious: Yes (Death)
  Sender: FDA-Public Use
  Company Number: US-ASTRAZENECA-2012SE13251

PATIENT

DRUGS (3)
  1. DOCETAXEL [Suspect]
     Indication: URETERIC CANCER METASTATIC
     Dosage: 75MG/M2 VIA 1 HOUR ON DAY 1
     Route: 042
  2. DEXAMETHASONE [Concomitant]
     Indication: URETERIC CANCER METASTATIC
     Dosage: 8MG AT ABOUT 12,3 AND 1 HOUR BEFORE DOCETAXEL
     Route: 042
  3. VANDETANIB [Suspect]
     Indication: URETHRAL CANCER METASTATIC
     Route: 048

REACTIONS (1)
  - LUNG INFECTION [None]
